FAERS Safety Report 9912418 (Version 1)
Quarter: 2014Q1

REPORT INFORMATION
  Report Type: Report from Study
  Country: GB (occurrence: GB)
  Receive Date: 20140220
  Receipt Date: 20140220
  Transmission Date: 20141002
  Serious: Yes (Life-Threatening, Hospitalization)
  Sender: FDA-Public Use
  Company Number: GB-ROCHE-1351802

PATIENT
  Age: 90 Year
  Sex: Female

DRUGS (5)
  1. RANIBIZUMAB [Suspect]
     Indication: AGE-RELATED MACULAR DEGENERATION
     Route: 050
     Dates: start: 20120822
  2. RANIBIZUMAB [Suspect]
     Route: 050
     Dates: start: 20130613
  3. ATENOLOL [Concomitant]
     Route: 065
     Dates: start: 2004
  4. ASPIRIN [Concomitant]
     Route: 065
     Dates: start: 2004
  5. BUMETANIDE [Concomitant]
     Route: 065
     Dates: start: 2004, end: 201311

REACTIONS (1)
  - Myocardial infarction [Recovered/Resolved]
